FAERS Safety Report 21771598 (Version 7)
Quarter: 2023Q1

REPORT INFORMATION
  Report Type: Report from Study
  Country: US (occurrence: None)
  Receive Date: 20221223
  Receipt Date: 20230327
  Transmission Date: 20230417
  Serious: Yes (Death, Hospitalization)
  Sender: FDA-Public Use
  Company Number: US-Eisai Medical Research-EC-2022-130576

PATIENT
  Age: 60 Year
  Sex: Male
  Weight: 103.1 kg

DRUGS (17)
  1. LENVATINIB [Suspect]
     Active Substance: LENVATINIB
     Indication: Adenocarcinoma gastric
     Dosage: FORMULATION TABLET
     Route: 048
     Dates: start: 20221111, end: 20221207
  2. LENVATINIB [Suspect]
     Active Substance: LENVATINIB
     Indication: Oesophageal adenocarcinoma
  3. PEMBROLIZUMAB [Suspect]
     Active Substance: PEMBROLIZUMAB
     Indication: Adenocarcinoma gastric
     Route: 041
     Dates: start: 20221111, end: 20221111
  4. PEMBROLIZUMAB [Suspect]
     Active Substance: PEMBROLIZUMAB
     Indication: Oesophageal adenocarcinoma
  5. OXALIPLATIN [Suspect]
     Active Substance: OXALIPLATIN
     Indication: Adenocarcinoma gastric
     Route: 042
     Dates: start: 20221111, end: 20221125
  6. OXALIPLATIN [Suspect]
     Active Substance: OXALIPLATIN
     Indication: Oesophageal adenocarcinoma
  7. LEUCOVORIN [Suspect]
     Active Substance: LEUCOVORIN
     Indication: Adenocarcinoma gastric
     Dosage: FOR 6 CYCLES
     Route: 042
     Dates: start: 20221111, end: 20221125
  8. LEUCOVORIN [Suspect]
     Active Substance: LEUCOVORIN
     Indication: Oesophageal adenocarcinoma
  9. FLUOROURACIL [Suspect]
     Active Substance: FLUOROURACIL
     Indication: Adenocarcinoma gastric
     Dosage: FOR 6 CYCLES
     Route: 040
     Dates: start: 20221111, end: 20221125
  10. FLUOROURACIL [Suspect]
     Active Substance: FLUOROURACIL
     Indication: Oesophageal adenocarcinoma
     Dosage: FOR 6 CYCLES, CONTINUOUS
     Route: 042
     Dates: start: 20221111, end: 20221127
  11. PROCHLORPERAZINE [Concomitant]
     Active Substance: PROCHLORPERAZINE
     Dates: start: 20221111
  12. ZOFRAN [Concomitant]
     Active Substance: ONDANSETRON HYDROCHLORIDE
     Dates: start: 20221211
  13. OXYCODONE [Concomitant]
     Active Substance: OXYCODONE
     Dates: start: 20221206
  14. AMITRIPTYLINE HYDROCHLORIDE [Concomitant]
     Active Substance: AMITRIPTYLINE HYDROCHLORIDE
     Dates: start: 20150402
  15. IBUPROFEN [Concomitant]
     Active Substance: IBUPROFEN
     Dates: start: 20221020
  16. ATIVAN [Concomitant]
     Active Substance: LORAZEPAM
     Dates: start: 20150806
  17. LOMOTIL [Concomitant]
     Active Substance: ATROPINE SULFATE\DIPHENOXYLATE HYDROCHLORIDE
     Dates: start: 20221114

REACTIONS (2)
  - Gastric haemorrhage [Fatal]
  - Muscular weakness [Recovering/Resolving]

NARRATIVE: CASE EVENT DATE: 20221215
